FAERS Safety Report 4778419-9 (Version None)
Quarter: 2005Q3

REPORT INFORMATION
  Report Type: 
  Country: None (occurrence: None)
  Receive Date: 20050923
  Receipt Date: 20050923
  Transmission Date: 20060218
  Serious: Yes (Hospitalization)
  Sender: FDA-Public Use
  Company Number: None

PATIENT
  Age: 8 Year
  Sex: Male
  Weight: 36.2878 kg

DRUGS (3)
  1. METADATE   10 MG    CELLTECH [Suspect]
     Indication: ATTENTION DEFICIT/HYPERACTIVITY DISORDER
     Dates: start: 20050903, end: 20050904
  2. ALLEGRA [Concomitant]
  3. PULMICORT [Concomitant]

REACTIONS (2)
  - GRAND MAL CONVULSION [None]
  - RESPIRATORY DISORDER [None]
